FAERS Safety Report 7576440-9 (Version None)
Quarter: 2011Q2

REPORT INFORMATION
  Report Type: 
  Country: None (occurrence: None)
  Receive Date: 20110624
  Receipt Date: 20110624
  Transmission Date: 20111010
  Serious: Yes (Other)
  Sender: FDA-Public Use
  Company Number: None

PATIENT
  Age: 22 Month
  Sex: Male
  Weight: 10.8863 kg

DRUGS (1)
  1. EVAMIST [Suspect]
     Indication: HOT FLUSH
     Dosage: 1-3 SPRAYS TO INNER ARM DAILY TOP
     Route: 061
     Dates: start: 20110309, end: 20110520

REACTIONS (6)
  - ACCIDENTAL EXPOSURE [None]
  - BREAST DISCHARGE [None]
  - BREAST ENLARGEMENT [None]
  - PRECOCIOUS PUBERTY [None]
  - INFECTION [None]
  - HAIR GROWTH ABNORMAL [None]
